FAERS Safety Report 11343122 (Version 3)
Quarter: 2015Q3

REPORT INFORMATION
  Report Type: Report from Study
  Country: GB (occurrence: GB)
  Receive Date: 20150806
  Receipt Date: 20150819
  Transmission Date: 20151125
  Serious: Yes (Other)
  Sender: FDA-Public Use
  Company Number: GB-AMGEN-GBRCT2015078073

PATIENT
  Age: 11 Month
  Sex: Male
  Weight: 10.2 kg

DRUGS (13)
  1. RED BLOOD CELLS, CONCENTRATED [Concomitant]
     Active Substance: HUMAN RED BLOOD CELL
     Dosage: 200 ML, UNK
     Dates: start: 20150624, end: 20150624
  2. DEXTROSE-SALINE [Concomitant]
     Dosage: 40-60 ML, UNK
     Route: 042
     Dates: start: 20150622, end: 20150629
  3. LANSOPRAZOLE. [Concomitant]
     Active Substance: LANSOPRAZOLE
     Dosage: 10 MG, UNK
     Route: 047
     Dates: start: 20150619, end: 20150719
  4. ALLOPURINOL. [Concomitant]
     Active Substance: ALLOPURINOL
     Dosage: 50 MG, UNK
     Route: 048
     Dates: start: 20150622, end: 20150719
  5. PARACETAMOL [Concomitant]
     Active Substance: ACETAMINOPHEN
     Dosage: 70 MG, UNK
     Route: 048
     Dates: start: 20150623, end: 20150623
  6. BLINATUMOMAB [Suspect]
     Active Substance: BLINATUMOMAB
     Indication: ACUTE LYMPHOCYTIC LEUKAEMIA
     Dosage: DOSE INCREASED ON PI INSTRUCTION DUE TO RISING WCC
     Route: 042
     Dates: start: 20150625
  7. PLATELETS [Concomitant]
     Active Substance: HUMAN PLATELET, ALLOGENIC
     Dosage: 1 UNK, UNK
     Route: 042
     Dates: start: 20150624, end: 20150624
  8. CHLORPHENAMINE [Concomitant]
     Active Substance: CHLORPHENIRAMINE MALEATE
     Dosage: 1 MG, UNK
     Route: 047
     Dates: start: 20150624, end: 20150624
  9. RANITIDINE [Concomitant]
     Active Substance: RANITIDINE\RANITIDINE HYDROCHLORIDE
     Dosage: 30 MG, UNK
     Route: 048
     Dates: start: 20150610, end: 20150719
  10. MERCAPTOPURINE. [Concomitant]
     Active Substance: MERCAPTOPURINE
     Dosage: 26 MG, UNK
     Route: 048
     Dates: start: 20150612, end: 20150622
  11. DEXAMETHASONE. [Concomitant]
     Active Substance: DEXAMETHASONE
     Dosage: 2.36-4.9 MG, UNK
     Route: 048
     Dates: start: 20150527, end: 20150719
  12. COTRIMOXAZOLE [Concomitant]
     Active Substance: SULFAMETHOXAZOLE\TRIMETHOPRIM
     Dosage: 135 MG, UNK
     Route: 048
     Dates: start: 20150518, end: 20150719
  13. AMBISOME [Concomitant]
     Active Substance: AMPHOTERICIN B
     Dosage: 9 MG, UNK
     Route: 042
     Dates: start: 20150602, end: 20150719

REACTIONS (1)
  - Inappropriate schedule of drug administration [Recovered/Resolved]

NARRATIVE: CASE EVENT DATE: 20150628
